FAERS Safety Report 12070837 (Version 2)
Quarter: 2016Q1

REPORT INFORMATION
  Report Type: Spontaneous
  Country: US (occurrence: US)
  Receive Date: 20160211
  Receipt Date: 20160219
  Transmission Date: 20160526
  Serious: No
  Sender: FDA-Public Use
  Company Number: US-BAYER-2016-027198

PATIENT
  Age: 36 Year
  Sex: Female

DRUGS (2)
  1. MIRENA [Suspect]
     Active Substance: LEVONORGESTREL
     Indication: CONTRACEPTION
     Dosage: 20 MCG/24HR, CONT
     Route: 015
     Dates: start: 200803, end: 201204
  2. MIRENA [Suspect]
     Active Substance: LEVONORGESTREL
     Indication: CONTRACEPTION
     Dosage: 20 MCG/24HR, CONT
     Route: 015
     Dates: start: 201308

REACTIONS (8)
  - Menorrhagia [Not Recovered/Not Resolved]
  - Hypomenorrhoea [None]
  - Menstruation irregular [Not Recovered/Not Resolved]
  - Polycystic ovaries [Recovered/Resolved]
  - Menorrhagia [None]
  - Metrorrhagia [None]
  - Mood altered [None]
  - Hormone level abnormal [None]

NARRATIVE: CASE EVENT DATE: 2015
